FAERS Safety Report 12903198 (Version 5)
Quarter: 2016Q4

REPORT INFORMATION
  Report Type: Spontaneous
  Country: US (occurrence: US)
  Receive Date: 20161102
  Receipt Date: 20161215
  Transmission Date: 20170207
  Serious: Yes (Other)
  Sender: FDA-Public Use
  Company Number: US-PFIZER INC-2016507983

PATIENT
  Age: 70 Year

DRUGS (4)
  1. CELEXA [Suspect]
     Active Substance: CITALOPRAM HYDROBROMIDE
     Dosage: 20 MG, DAILY
  2. SIMVASTIN [Suspect]
     Active Substance: SIMVASTATIN
     Dosage: UNK
  3. LIPITOR [Suspect]
     Active Substance: ATORVASTATIN CALCIUM
     Dosage: 20 MG, AS NEEDED (1/DAY)
  4. DIFLUCAN [Suspect]
     Active Substance: FLUCONAZOLE
     Dosage: 200 MG, UNK
     Dates: start: 20130309, end: 20130319

REACTIONS (1)
  - Electrocardiogram QT interval abnormal [Unknown]

NARRATIVE: CASE EVENT DATE: 201303
